FAERS Safety Report 17498712 (Version 1)
Quarter: 2020Q1

REPORT INFORMATION
  Report Type: Spontaneous
  Country: FR (occurrence: FR)
  Receive Date: 20200304
  Receipt Date: 20200304
  Transmission Date: 20200409
  Serious: Yes (Life-Threatening)
  Sender: FDA-Public Use
  Company Number: FR-ELI_LILLY_AND_COMPANY-FR202002014257

PATIENT
  Age: 50 Year
  Sex: Female
  Weight: 50.8 kg

DRUGS (5)
  1. PARACETAMOL [Suspect]
     Active Substance: ACETAMINOPHEN
     Indication: SUICIDE ATTEMPT
     Dosage: CF COMMENTAIRE
     Route: 048
     Dates: start: 20191023, end: 20191023
  2. CODEINE [Suspect]
     Active Substance: CODEINE
     Indication: SUICIDE ATTEMPT
     Dosage: 1.68 G, UNKNOWN
     Route: 048
     Dates: start: 20191023, end: 20191023
  3. IMODIUM [Suspect]
     Active Substance: LOPERAMIDE HYDROCHLORIDE
     Indication: SUICIDE ATTEMPT
     Dosage: 1.86 G, UNKNOWN
     Route: 048
     Dates: start: 20191023, end: 20191023
  4. DULOXETINE HYDROCHLORIDE. [Suspect]
     Active Substance: DULOXETINE HYDROCHLORIDE
     Indication: SUICIDE ATTEMPT
     Dosage: 2.1 G, UNKNOWN
     Route: 048
     Dates: start: 20191023, end: 20191023
  5. AMOXICILLIN ANHYDROUS [Suspect]
     Active Substance: AMOXICILLIN
     Indication: SUICIDE ATTEMPT
     Dosage: 6 G, UNKNOWN
     Route: 048
     Dates: start: 20191023, end: 20191023

REACTIONS (6)
  - Toxicity to various agents [Recovered/Resolved]
  - Agitation [Recovered/Resolved]
  - Somnolence [Recovered/Resolved]
  - Abdominal pain upper [Recovered/Resolved]
  - Hepatocellular injury [Recovered/Resolved]
  - Aggression [Recovered/Resolved]

NARRATIVE: CASE EVENT DATE: 20191023
